FAERS Safety Report 8429174-2 (Version None)
Quarter: 2012Q2

REPORT INFORMATION
  Report Type: 
  Country: None (occurrence: None)
  Receive Date: 20120612
  Receipt Date: 20120605
  Transmission Date: 20120825
  Serious: Yes (Hospitalization, Other)
  Sender: FDA-Public Use
  Company Number: FR-PFIZER INC-2012016216

PATIENT
  Age: 25 Year
  Sex: Male
  Weight: 85 kg

DRUGS (3)
  1. IBUPROFEN [Suspect]
     Dosage: ONE BLISTER PACK
     Route: 048
     Dates: start: 20111229, end: 20111229
  2. ACETAMINOPHEN AND TRAMADOL HCL [Suspect]
     Dosage: 6 DF, SINGLE
     Route: 048
     Dates: start: 20111229, end: 20111229
  3. XANAX [Suspect]
     Dosage: 10 DF, SINGLE DOSE
     Route: 048
     Dates: start: 20111229, end: 20111229

REACTIONS (6)
  - TOXICITY TO VARIOUS AGENTS [None]
  - INSOMNIA [None]
  - COLITIS [None]
  - ABDOMINAL PAIN UPPER [None]
  - RENAL FAILURE ACUTE [None]
  - GASTRITIS [None]
